FAERS Safety Report 10200729 (Version 1)
Quarter: 2014Q2

REPORT INFORMATION
  Report Type: Spontaneous
  Country: US (occurrence: None)
  Receive Date: 20140523
  Receipt Date: 20140523
  Transmission Date: 20141212
  Serious: No
  Sender: FDA-Public Use
  Company Number: None

PATIENT
  Age: 50 Year
  Sex: Female

DRUGS (1)
  1. MONISTAT 1 DAY [Suspect]
     Indication: FUNGAL INFECTION
     Dosage: 1 OVULE?AT BEDTIME ?VAGINAL?1 TIME
     Route: 067

REACTIONS (3)
  - Application site swelling [None]
  - Application site pain [None]
  - Application site pruritus [None]
